FAERS Safety Report 25392405 (Version 1)
Quarter: 2025Q2

REPORT INFORMATION
  Report Type: Spontaneous
  Country: US (occurrence: US)
  Receive Date: 20250603
  Receipt Date: 20250603
  Transmission Date: 20250716
  Serious: No
  Sender: SANOFI AVENTIS
  Company Number: US-SA-2025SA156397

PATIENT
  Sex: Male

DRUGS (1)
  1. DUPIXENT [Suspect]
     Active Substance: DUPILUMAB
     Indication: Eosinophilic oesophagitis
     Dosage: 300 MG, QW
     Route: 058
     Dates: start: 20231101

REACTIONS (6)
  - Eyelid pain [Unknown]
  - Rhinorrhoea [Unknown]
  - Urticaria [Unknown]
  - Eyelids pruritus [Unknown]
  - Rash [Unknown]
  - Arthralgia [Unknown]
